FAERS Safety Report 8916946 (Version 1)
Quarter: 2012Q4

REPORT INFORMATION
  Report Type: Report from Study
  Country: JP (occurrence: JP)
  Receive Date: 20121120
  Receipt Date: 20121120
  Transmission Date: 20130627
  Serious: Yes (Hospitalization, Other)
  Sender: FDA-Public Use
  Company Number: JP-VERTEX PHARMACEUTICAL INC.-AE-2012-006745

PATIENT
  Age: 65 Year
  Sex: Male

DRUGS (10)
  1. VX-950 (TELAPREVIR) [Suspect]
     Indication: CHRONIC HEPATITIS C
     Dosage: 2250 mg, qd
     Route: 048
     Dates: start: 20120313, end: 20120404
  2. PEGINTRON                          /01543001/ [Suspect]
     Indication: CHRONIC HEPATITIS C
     Dosage: 1.5 ?g/kg, qw
     Route: 058
     Dates: start: 20120313, end: 20120404
  3. PEGINTRON                          /01543001/ [Suspect]
     Dosage: UNK
  4. REBETOL [Suspect]
     Indication: CHRONIC HEPATITIS C
     Route: 048
     Dates: start: 20120313, end: 20120404
  5. BACTRAMIN [Suspect]
     Indication: ADVERSE EVENT
     Dosage: 1 DF, qd
     Route: 048
     Dates: start: 20120502, end: 20120610
  6. LASIX                              /00032601/ [Concomitant]
     Route: 048
     Dates: end: 20120501
  7. ALDACTONE-A [Concomitant]
     Route: 048
     Dates: end: 20120501
  8. CELESTAMINE                        /00252801/ [Concomitant]
     Route: 048
     Dates: end: 20120425
  9. NEO-MINOPHAGEN C [Concomitant]
     Dosage: 40 ml, UNK
     Route: 042
     Dates: start: 20120623
  10. URSO                               /00465701/ [Concomitant]
     Dosage: 600 mg, qd
     Route: 048
     Dates: start: 20120629

REACTIONS (6)
  - Interstitial lung disease [Recovered/Resolved]
  - Pancreatitis acute [Recovered/Resolved]
  - Hepatic failure [Recovered/Resolved]
  - Pseudomembranous colitis [Recovered/Resolved]
  - Nephrotic syndrome [Recovered/Resolved]
  - Platelet count decreased [Recovered/Resolved]
